FAERS Safety Report 5957059-X (Version None)
Quarter: 2008Q4

REPORT INFORMATION
  Report Type: 
  Country: None (occurrence: None)
  Receive Date: 20081118
  Receipt Date: 20081110
  Transmission Date: 20090506
  Serious: Yes (Other)
  Sender: FDA-Public Use
  Company Number: PHHY2008BR27838

PATIENT
  Age: 60 Year
  Sex: Male
  Weight: 77 kg

DRUGS (3)
  1. VISKALDIX [Suspect]
     Indication: HYPERTENSION
     Dosage: 1 DF, QD
     Route: 060
  2. LORAX                                   /BRA/ [Concomitant]
     Indication: SLEEP APNOEA SYNDROME
     Dosage: 1 TABLET AT NIGHT
     Route: 048
  3. LORAX                                   /BRA/ [Concomitant]
     Indication: ANXIETY

REACTIONS (2)
  - BLOOD PRESSURE INCREASED [None]
  - DYSGEUSIA [None]
